FAERS Safety Report 20910579 (Version 1)
Quarter: 2022Q2

REPORT INFORMATION
  Report Type: Spontaneous
  Country: US (occurrence: None)
  Receive Date: 20220602
  Receipt Date: 20220602
  Transmission Date: 20220721
  Serious: Yes (Other)
  Sender: FDA-Public Use
  Company Number: None

PATIENT
  Age: 68 Year
  Sex: Female
  Weight: 84.6 kg

DRUGS (1)
  1. HYDROCODONE [Suspect]
     Active Substance: HYDROCODONE
     Indication: Pain

REACTIONS (4)
  - Product substitution issue [None]
  - Pain [None]
  - Bedridden [None]
  - Inadequate analgesia [None]

NARRATIVE: CASE EVENT DATE: 20220401
